FAERS Safety Report 15980554 (Version 7)
Quarter: 2023Q4

REPORT INFORMATION
  Report Type: Spontaneous
  Country: US (occurrence: US)
  Receive Date: 20190219
  Receipt Date: 20231204
  Transmission Date: 20240109
  Serious: Yes (Hospitalization, Other)
  Sender: FDA-Public Use
  Company Number: US-PFIZER INC-2019063958

PATIENT
  Age: 75 Year
  Sex: Female
  Weight: 78 kg

DRUGS (11)
  1. XELJANZ XR [Suspect]
     Active Substance: TOFACITINIB CITRATE
     Indication: Rheumatoid arthritis
     Dosage: 11 MG, 1X/DAY
     Dates: start: 20160622
  2. XELJANZ XR [Suspect]
     Active Substance: TOFACITINIB CITRATE
     Dosage: 11MG 1X/DAY (IN THE MORNINGS)
     Route: 048
     Dates: end: 20200324
  3. XELJANZ XR [Suspect]
     Active Substance: TOFACITINIB CITRATE
     Dosage: 11 MG
  4. XELJANZ XR [Suspect]
     Active Substance: TOFACITINIB CITRATE
     Dosage: 11MG ONCE DAILY
     Dates: start: 2018
  5. CODEINE [Concomitant]
     Active Substance: CODEINE
     Indication: Pain
     Dosage: UNK UNK, AS NEEDED(WHEN NEEDED 1 TABLET OR 4 TABLET)
     Dates: start: 201606
  6. CODEINE [Concomitant]
     Active Substance: CODEINE
     Dosage: JUST WHEN NEED FOR PAIN
     Dates: start: 201405
  7. METHOTREXATE [Concomitant]
     Active Substance: METHOTREXATE
     Dosage: 0.8 ML, WEEKLY
     Dates: start: 201606
  8. METHOTREXATE [Concomitant]
     Active Substance: METHOTREXATE
     Dosage: 8 MG, WEEKLY
  9. METHOTREXATE [Concomitant]
     Active Substance: METHOTREXATE
     Dosage: UNK
     Dates: start: 2018
  10. FLECAINIDE [Concomitant]
     Active Substance: FLECAINIDE
     Dosage: 50 MG / TWICE DAILY
     Dates: start: 2021
  11. METOPROLOL [Concomitant]
     Active Substance: METOPROLOL
     Dosage: 25 MG / TWICE DAILY
     Dates: start: 2021

REACTIONS (5)
  - Heart rate decreased [Recovered/Resolved]
  - Knee arthroplasty [Not Recovered/Not Resolved]
  - Cardiac operation [Unknown]
  - Gait disturbance [Not Recovered/Not Resolved]
  - Hypoaesthesia [Unknown]

NARRATIVE: CASE EVENT DATE: 20191202
